FAERS Safety Report 5009501-9 (Version None)
Quarter: 2006Q2

REPORT INFORMATION
  Report Type: 
  Country: None (occurrence: None)
  Receive Date: 20060524
  Receipt Date: 20060517
  Transmission Date: 20061013
  Serious: Yes (Hospitalization)
  Sender: FDA-Public Use
  Company Number: GB-JNJFOC-20060404881

PATIENT
  Sex: Female
  Weight: 25.1 kg

DRUGS (1)
  1. CONCERTA [Suspect]
     Indication: ATTENTION DEFICIT/HYPERACTIVITY DISORDER
     Route: 048

REACTIONS (7)
  - AGITATION [None]
  - CHEILITIS [None]
  - DISORIENTATION [None]
  - DRY MOUTH [None]
  - HYPERVENTILATION [None]
  - MOOD SWINGS [None]
  - SWOLLEN TONGUE [None]
